FAERS Safety Report 10217383 (Version 2)
Quarter: 2014Q2

REPORT INFORMATION
  Report Type: Spontaneous
  Country: US (occurrence: US)
  Receive Date: 20140604
  Receipt Date: 20140623
  Transmission Date: 20141212
  Serious: Yes (Hospitalization)
  Sender: FDA-Public Use
  Company Number: US-ACTELION-A-US2014-099671

PATIENT
  Age: 43 Year
  Sex: Male

DRUGS (3)
  1. TRACLEER [Suspect]
     Indication: PULMONARY HYPERTENSION
     Dosage: UNK
     Route: 048
     Dates: start: 201201
  2. RIOCIGUAT [Concomitant]
  3. WARFARIN [Concomitant]

REACTIONS (2)
  - Thrombosis [Recovering/Resolving]
  - Pneumonia [Recovering/Resolving]
